FAERS Safety Report 8498686-8 (Version None)
Quarter: 2012Q3

REPORT INFORMATION
  Report Type: 
  Country: None (occurrence: None)
  Receive Date: 20120709
  Receipt Date: 20120627
  Transmission Date: 20120928
  Serious: No
  Sender: FDA-Public Use
  Company Number: US-AMGEN-USASP2012036485

PATIENT
  Age: 42 Year
  Sex: Female

DRUGS (1)
  1. ENBREL [Suspect]
     Indication: RHEUMATOID ARTHRITIS
     Dosage: 50 MG, QWK
     Dates: start: 20120526

REACTIONS (5)
  - VOMITING [None]
  - INJECTION SITE URTICARIA [None]
  - INJECTION SITE HAEMATOMA [None]
  - MYALGIA [None]
  - PYREXIA [None]
